FAERS Safety Report 9420132 (Version 1)
Quarter: 2013Q3

REPORT INFORMATION
  Report Type: Spontaneous
  Country: GB (occurrence: GB)
  Receive Date: 20130725
  Receipt Date: 20130725
  Transmission Date: 20140515
  Serious: Yes (Life-Threatening, Hospitalization)
  Sender: FDA-Public Use
  Company Number: GB-TEVA-419579ISR

PATIENT
  Age: 15 Year
  Sex: Male
  Weight: 42 kg

DRUGS (14)
  1. METHOTREXATE [Suspect]
     Indication: ANAPLASTIC LARGE-CELL LYMPHOMA
     Dosage: 3900 MILLIGRAM DAILY;
     Route: 042
     Dates: start: 20130619, end: 20130619
  2. LANSOPRAZOLE [Suspect]
     Indication: DYSPEPSIA
     Dosage: 30 MILLIGRAM DAILY;
     Route: 048
     Dates: start: 20130525, end: 20130621
  3. ONDANSETRON [Concomitant]
  4. LEVOMEPROMAZINE [Concomitant]
  5. PARACETAMOL [Concomitant]
  6. PIPERACILLIN AND TAZOBACTAM [Concomitant]
  7. GENTAMICIN [Concomitant]
  8. CODEINE [Concomitant]
  9. MESNA [Concomitant]
  10. IFOSFAMIDE [Concomitant]
  11. CYTARABINE [Concomitant]
  12. DEXAMETHASONE [Concomitant]
  13. CALCIUM FOLINATE [Concomitant]
  14. ETOPOSIDE [Concomitant]

REACTIONS (6)
  - Renal failure acute [Unknown]
  - Tubulointerstitial nephritis [Recovering/Resolving]
  - White blood cell count increased [Recovered/Resolved]
  - Abdominal pain [Unknown]
  - Blood creatine increased [Unknown]
  - Renal failure [Unknown]
